FAERS Safety Report 4977998-6 (Version None)
Quarter: 2006Q2

REPORT INFORMATION
  Report Type: 
  Country: None (occurrence: None)
  Receive Date: 20060420
  Receipt Date: 20050930
  Transmission Date: 20061013
  Serious: Yes (Hospitalization, Other)
  Sender: FDA-Public Use
  Company Number: US-MERCK-0510USA02050

PATIENT
  Age: 64 Year
  Sex: Female

DRUGS (16)
  1. VIOXX [Suspect]
     Indication: ARTHRITIS
     Route: 048
  2. ZANTAC [Concomitant]
     Route: 065
  3. XANAX [Concomitant]
     Route: 065
  4. CALAN [Concomitant]
     Route: 065
  5. IMIPRAMINE HYDROCHLORIDE [Concomitant]
     Route: 065
  6. HYDROCODONE BITARTRATE [Concomitant]
     Indication: ARTHRITIS
     Route: 065
  7. MOTRIN [Concomitant]
     Route: 065
  8. NITROGLYCERIN [Concomitant]
     Route: 065
  9. NEXIUM [Concomitant]
     Route: 065
  10. ESTRADERM [Concomitant]
     Route: 065
  11. PROVIGIL [Concomitant]
     Route: 065
  12. LOPRESSOR [Concomitant]
     Route: 065
  13. LASIX [Concomitant]
     Route: 065
  14. ASPIRIN [Concomitant]
     Route: 065
  15. NORVASC [Concomitant]
     Route: 065
  16. VICODIN [Concomitant]
     Route: 065

REACTIONS (24)
  - ANAPHYLACTIC REACTION [None]
  - AORTIC DISSECTION [None]
  - APHTHOUS STOMATITIS [None]
  - ARTERY DISSECTION [None]
  - ATRIAL FIBRILLATION [None]
  - BACK PAIN [None]
  - CHEST PAIN [None]
  - CORONARY ARTERY DISEASE [None]
  - CORONARY ARTERY STENOSIS [None]
  - DEHYDRATION [None]
  - DELIRIUM [None]
  - DILATATION VENTRICULAR [None]
  - DIZZINESS [None]
  - GASTROINTESTINAL DISORDER [None]
  - HYPOKALAEMIA [None]
  - HYPOXIA [None]
  - INJURY [None]
  - INSOMNIA [None]
  - MAJOR DEPRESSION [None]
  - OEDEMA PERIPHERAL [None]
  - OSTEOPENIA [None]
  - RENAL FAILURE [None]
  - RENAL FAILURE ACUTE [None]
  - URINARY TRACT INFECTION [None]
